FAERS Safety Report 23182159 (Version 1)
Quarter: 2023Q4

REPORT INFORMATION
  Report Type: Spontaneous
  Country: ES (occurrence: ES)
  Receive Date: 20231114
  Receipt Date: 20231114
  Transmission Date: 20240110
  Serious: Yes (Other)
  Sender: FDA-Public Use
  Company Number: ES-BAXTER-2023BAX035530

PATIENT

DRUGS (1)
  1. TISSEEL (FACTOR XIII CONCENTRATE (HUMAN)\FIBRINOGEN HUMAN\THROMBIN HUM [Suspect]
     Active Substance: APROTININ\CALCIUM CHLORIDE\FIBRINOGEN HUMAN\FACTOR XIII CONCENTRATE (HUMAN)\THROMBIN
     Dosage: PRIMA 4 ML
     Route: 065
     Dates: start: 20231023

REACTIONS (3)
  - Cyst [Unknown]
  - Conjunctival hyperaemia [Unknown]
  - Seroma [Unknown]
